FAERS Safety Report 6700544-3 (Version None)
Quarter: 2010Q2

REPORT INFORMATION
  Report Type: 
  Country: None (occurrence: None)
  Receive Date: 20100428
  Receipt Date: 20100421
  Transmission Date: 20101027
  Serious: Yes (Other)
  Sender: FDA-Public Use
  Company Number: A0856113A

PATIENT
  Sex: Female

DRUGS (1)
  1. LOVAZA [Suspect]
     Dosage: 2CAP TWICE PER DAY
     Route: 048

REACTIONS (2)
  - ANKLE FRACTURE [None]
  - MULTIPLE FRACTURES [None]
